FAERS Safety Report 10756788 (Version 1)
Quarter: 2015Q1

REPORT INFORMATION
  Report Type: Spontaneous
  Country: US (occurrence: US)
  Receive Date: 20150203
  Receipt Date: 20150203
  Transmission Date: 20150721
  Serious: Yes (Other)
  Sender: FDA-Public Use
  Company Number: US-AMGEN-USASP2015008065

PATIENT
  Age: 47 Year
  Sex: Female

DRUGS (1)
  1. ENBREL [Suspect]
     Active Substance: ETANERCEPT
     Indication: BEHCET^S SYNDROME
     Dosage: 50 MG, QWK
     Route: 065
     Dates: start: 20140107, end: 201501

REACTIONS (4)
  - Petit mal epilepsy [Recovered/Resolved]
  - Generalised tonic-clonic seizure [Recovered/Resolved]
  - Behcet^s syndrome [Not Recovered/Not Resolved]
  - Seizure [Recovered/Resolved]

NARRATIVE: CASE EVENT DATE: 20141031
